FAERS Safety Report 5373672-5 (Version None)
Quarter: 2007Q2

REPORT INFORMATION
  Report Type: 
  Country: None (occurrence: None)
  Receive Date: 20070615
  Receipt Date: 20060531
  Transmission Date: 20071010
  Serious: Yes (Other)
  Sender: FDA-Public Use
  Company Number: 200516029US

PATIENT
  Age: 45 Year
  Sex: Female
  Weight: 85.4 kg

DRUGS (20)
  1. LANTUS [Suspect]
     Indication: DIABETES MELLITUS NON-INSULIN-DEPENDENT
     Dosage: 10 U QD
     Dates: start: 20050601
  2. LANTUS [Suspect]
     Indication: DIABETES MELLITUS NON-INSULIN-DEPENDENT
     Dosage: 50 U
  3. OPTICLIK [Suspect]
     Indication: DIABETES MELLITUS NON-INSULIN-DEPENDENT
     Dates: start: 20050601
  4. ASPIRIN [Concomitant]
  5. NEURONTIN [Concomitant]
  6. PRAMIPEXOLE DIHYDROCHLORIDE (MIRAPEX) [Concomitant]
  7. LEVOTHYROXINE SODIUM [Concomitant]
  8. BENAZEPRIL HYDROCHLORIDE [Concomitant]
  9. AMBIEN [Concomitant]
  10. PIOGLITAZONE [Concomitant]
  11. CAFFEINE, BUTALBITAL, PARACETAMOL (ESGIC-PLUS) [Concomitant]
  12. ATORVASTATIN CALCIUM (LIPITOR) [Concomitant]
  13. ESOMEPRAZOLE MAGNESIUM [Concomitant]
  14. DULOXETINE HYDROCHLORIDE (CYMBALTA) [Concomitant]
  15. FUROSEMIDE [Concomitant]
  16. METFORMIN HYDROCHLORIDE [Concomitant]
  17. CARISOPRODOL (SOMA) [Concomitant]
  18. MORPHINE [Concomitant]
  19. OLANAZEPAM [Concomitant]
  20. HYDROXYZINE [Concomitant]

REACTIONS (1)
  - HYPERGLYCAEMIA [None]
